FAERS Safety Report 8950334 (Version 1)
Quarter: 2012Q4

REPORT INFORMATION
  Report Type: Spontaneous
  Country: US (occurrence: None)
  Receive Date: 20121130
  Receipt Date: 20121130
  Transmission Date: 20130627
  Serious: Yes (Hospitalization)
  Sender: FDA-Public Use
  Company Number: None

PATIENT
  Age: 34 Year
  Sex: Male

DRUGS (1)
  1. AMPICILLIN/SULBACT [Suspect]
     Indication: ANTIBIOTIC THERAPY
     Dosage: 1 dose
     Route: 042

REACTIONS (2)
  - Rash erythematous [None]
  - Rash maculo-papular [None]
